FAERS Safety Report 9210084 (Version 2)
Quarter: 2013Q3

REPORT INFORMATION
  Report Type: Spontaneous
  Country: US (occurrence: US)
  Receive Date: 20130404
  Receipt Date: 20130711
  Transmission Date: 20140515
  Serious: No
  Sender: FDA-Public Use
  Company Number: US-ASTELLAS-2013US002716

PATIENT
  Age: 83 Year
  Sex: Female

DRUGS (2)
  1. MYRBETRIQ [Suspect]
     Indication: POLLAKIURIA
     Dosage: 25 MG, UID/QD
     Route: 048
     Dates: start: 20130227, end: 20130228
  2. MYRBETRIQ [Suspect]
     Indication: URINE OUTPUT DECREASED

REACTIONS (7)
  - Off label use [Unknown]
  - Vomiting [Unknown]
  - Syncope [Unknown]
  - Nausea [Unknown]
  - Diarrhoea [Recovered/Resolved]
  - Dizziness [Unknown]
  - Incontinence [Not Recovered/Not Resolved]
